FAERS Safety Report 7587195-6 (Version None)
Quarter: 2011Q2

REPORT INFORMATION
  Report Type: 
  Country: None (occurrence: None)
  Receive Date: 20110623
  Receipt Date: 20110620
  Transmission Date: 20111010
  Serious: No
  Sender: FDA-Public Use
  Company Number: US-PFIZER INC-2011136813

PATIENT
  Sex: Female

DRUGS (1)
  1. ADVIL PM [Suspect]
     Indication: MYALGIA
     Dosage: UNK, 1X/DAY
     Dates: start: 20110618, end: 20110618

REACTIONS (2)
  - INSOMNIA [None]
  - DRUG INEFFECTIVE [None]
